FAERS Safety Report 21200794 (Version 1)
Quarter: 2022Q3

REPORT INFORMATION
  Report Type: Spontaneous
  Country: CN (occurrence: CN)
  Receive Date: 20220811
  Receipt Date: 20220811
  Transmission Date: 20221027
  Serious: Yes (Hospitalization)
  Sender: FDA-Public Use
  Company Number: CN-IGSA-BIG0019970

PATIENT
  Age: 71 Year
  Sex: Female

DRUGS (1)
  1. HUMAN ALBUMIN GRIFOLS 20% [Suspect]
     Active Substance: ALBUMIN HUMAN
     Indication: Hypoproteinaemia
     Dosage: 50 MILLILITER, SINGLE
     Route: 042
     Dates: start: 20220731, end: 20220731

REACTIONS (8)
  - Feeling cold [Recovering/Resolving]
  - Chills [Recovering/Resolving]
  - Body temperature increased [Recovering/Resolving]
  - Dyspnoea [Recovering/Resolving]
  - Heart rate increased [Recovering/Resolving]
  - Respiratory rate increased [Recovering/Resolving]
  - Blood pressure decreased [Recovering/Resolving]
  - Oxygen saturation decreased [Recovering/Resolving]

NARRATIVE: CASE EVENT DATE: 20220731
